FAERS Safety Report 4929753-0 (Version None)
Quarter: 2006Q1

REPORT INFORMATION
  Report Type: 
  Country: None (occurrence: None)
  Receive Date: 20060224
  Receipt Date: 20060217
  Transmission Date: 20060701
  Serious: Yes (Other)
  Sender: FDA-Public Use
  Company Number: 230272K06USA

PATIENT
  Age: 58 Year
  Sex: Female

DRUGS (5)
  1. REBIF [Suspect]
     Indication: MULTIPLE SCLEROSIS
     Dosage: SEE IMAGE
     Dates: start: 20031006, end: 20060101
  2. REBIF [Suspect]
     Indication: MULTIPLE SCLEROSIS
     Dosage: SEE IMAGE
     Dates: start: 20060101
  3. SYNTHROID [Concomitant]
  4. PREMARIN [Concomitant]
  5. LEXAPRO [Concomitant]

REACTIONS (13)
  - CEREBROVASCULAR ACCIDENT [None]
  - CONVULSION [None]
  - DEPRESSED LEVEL OF CONSCIOUSNESS [None]
  - DYSKINESIA [None]
  - FALL [None]
  - FATIGUE [None]
  - FREEZING PHENOMENON [None]
  - HEADACHE [None]
  - MOVEMENT DISORDER [None]
  - NECK PAIN [None]
  - SOMNOLENCE [None]
  - UPPER LIMB FRACTURE [None]
  - URINARY INCONTINENCE [None]
